FAERS Safety Report 10723790 (Version 3)
Quarter: 2015Q1

REPORT INFORMATION
  Report Type: Spontaneous
  Country: US (occurrence: None)
  Receive Date: 20150114
  Receipt Date: 20150323
  Transmission Date: 20150721
  Serious: Yes (Other)
  Sender: FDA-Public Use
  Company Number: DEP_02443_2015

PATIENT
  Age: 63 Year
  Sex: Male
  Weight: 89.36 kg

DRUGS (4)
  1. GRALISE [Suspect]
     Active Substance: GABAPENTIN
     Indication: NEUROPATHY PERIPHERAL
     Dosage: SAMPLE PACK, TITRATED UP TO 1800 MG, ONCE DAILY WITH DINNER ORAL
     Route: 048
     Dates: start: 20141028, end: 201411
  2. GRALISE [Suspect]
     Active Substance: GABAPENTIN
     Indication: OFF LABEL USE
     Dosage: SAMPLE PACK, TITRATED UP TO 1800 MG, ONCE DAILY WITH DINNER ORAL
     Route: 048
     Dates: start: 20141028, end: 201411
  3. DURAGESIC [Concomitant]
     Active Substance: FENTANYL
  4. XANAX [Concomitant]
     Active Substance: ALPRAZOLAM

REACTIONS (6)
  - Dysphagia [None]
  - Soft tissue mass [None]
  - Lymphoma [None]
  - Oropharyngeal pain [None]
  - Metastatic neoplasm [None]
  - Drug ineffective [None]

NARRATIVE: CASE EVENT DATE: 201411
